FAERS Safety Report 22044795 (Version 1)
Quarter: 2023Q1

REPORT INFORMATION
  Report Type: Spontaneous
  Country: US (occurrence: None)
  Receive Date: 20230227
  Receipt Date: 20230227
  Transmission Date: 20230417
  Serious: No
  Sender: FDA-Public Use
  Company Number: None

PATIENT

DRUGS (1)
  1. EXEMESTANE [Suspect]
     Active Substance: EXEMESTANE
     Route: 048

REACTIONS (4)
  - Product dispensing error [None]
  - Drug monitoring procedure not performed [None]
  - Wrong product administered [None]
  - Wrong patient received product [None]
